FAERS Safety Report 5701757-X (Version None)
Quarter: 2008Q2

REPORT INFORMATION
  Report Type: 
  Country: None (occurrence: None)
  Receive Date: 20080411
  Receipt Date: 20080401
  Transmission Date: 20081010
  Serious: Yes (Other)
  Sender: FDA-Public Use
  Company Number: FR-BRISTOL-MYERS SQUIBB COMPANY-13838693

PATIENT
  Age: 47 Year
  Sex: Female
  Weight: 61 kg

DRUGS (7)
  1. ERBITUX [Suspect]
     Indication: TONSIL CANCER
     Dosage: 200MG,3 DAYS/CYC,1 CYC EVERY 21 DAYS,7 CYC(300MG) FROM 19MAR-04-JUN-07,200MG FROM 18JUN07-STOPPED
     Route: 042
     Dates: start: 20070319, end: 20070604
  2. CISPLATIN [Suspect]
     Indication: TONSIL CANCER
     Dosage: 3 CYCLES OF 35MG,3D/CYC,1CYC Q21D FROM 18JAN07,7 CYCLES OF 30MG FROM 19MAR 07 TO 4JUN07
     Route: 042
     Dates: start: 20070319, end: 20070604
  3. VEPESID [Suspect]
     Indication: TONSIL CANCER
     Route: 042
     Dates: start: 20070319, end: 20070604
  4. RADIOTHERAPY [Suspect]
     Indication: TONSIL CANCER
     Dosage: 1 DOSAGE FORM = 43 GRAYS,DISCONTINUED ON 19 APR-07,RESARTED -30 GRAYS. FROM 18MAY07 -08JUN07(21D)
     Dates: start: 20070313, end: 20070418
  5. TAXOTERE [Concomitant]
     Indication: TONSIL CANCER
     Dosage: 3 CYCLES OF 30MG,3D/CYC,1CYC Q21D FROM 18JAN07
     Route: 042
     Dates: start: 20070118
  6. ZOPHREN [Concomitant]
     Route: 042
     Dates: start: 20070319, end: 20070604
  7. SOLU-MEDROL [Concomitant]
     Route: 042
     Dates: start: 20070319, end: 20070604

REACTIONS (3)
  - HYPERSENSITIVITY [None]
  - RADIATION SKIN INJURY [None]
  - THERMAL BURN [None]
